FAERS Safety Report 5733292-7 (Version None)
Quarter: 2008Q2

REPORT INFORMATION
  Report Type: 
  Country: None (occurrence: None)
  Receive Date: 20080509
  Receipt Date: 20080429
  Transmission Date: 20081010
  Serious: Yes (Other)
  Sender: FDA-Public Use
  Company Number: B0519590A

PATIENT
  Age: 11 Year
  Sex: Male

DRUGS (1)
  1. PROPAFENONE HYDROCHLORIDE [Suspect]
     Indication: DRUG USE FOR UNKNOWN INDICATION
     Route: 065

REACTIONS (8)
  - ATRIAL FIBRILLATION [None]
  - CHEST PAIN [None]
  - HEADACHE [None]
  - HEART RATE IRREGULAR [None]
  - HOT FLUSH [None]
  - NAUSEA [None]
  - RASH [None]
  - SYNCOPE [None]
